FAERS Safety Report 13521929 (Version 1)
Quarter: 2017Q2

REPORT INFORMATION
  Report Type: Spontaneous
  Country: US (occurrence: US)
  Receive Date: 20170505
  Receipt Date: 20170505
  Transmission Date: 20170830
  Serious: No
  Sender: FDA-Public Use
  Company Number: None

PATIENT
  Age: 37 Year
  Sex: Male

DRUGS (1)
  1. ODEFSEY [Suspect]
     Active Substance: EMTRICITABINE\RILPIVIRINE HYDROCHLORIDE\TENOFOVIR ALAFENAMIDE FUMARATE
     Indication: HIV INFECTION
     Dosage: 200MG-25MG-25MG QD ORAL
     Route: 048
     Dates: start: 20170318

REACTIONS (3)
  - Pruritus [None]
  - Rash [None]
  - Nipple disorder [None]

NARRATIVE: CASE EVENT DATE: 20170308
